FAERS Safety Report 21744696 (Version 2)
Quarter: 2022Q4

REPORT INFORMATION
  Report Type: Spontaneous
  Country: FR (occurrence: FR)
  Receive Date: 20221218
  Receipt Date: 20221220
  Transmission Date: 20230113
  Serious: Yes (Death, Hospitalization, Other)
  Sender: FDA-Public Use
  Company Number: FR-STRIDES ARCOLAB LIMITED-2022SP016988

PATIENT

DRUGS (22)
  1. DEXAMETHASONE [Suspect]
     Active Substance: DEXAMETHASONE
     Indication: Primary mediastinal large B-cell lymphoma
     Dosage: UNK,RECEIVED THREE COURSES; PART OF R-DHAP REGIMEN
     Route: 065
  2. METHOTREXATE [Suspect]
     Active Substance: METHOTREXATE
     Indication: Primary mediastinal large B-cell lymphoma
     Dosage: UNK,RECEIVED ON DAY 1
     Route: 037
  3. METHOTREXATE [Suspect]
     Active Substance: METHOTREXATE
     Dosage: 3 MILLIGRAM/SQ. METER,RECEIVED ON DAY 1; PART OF COPADM REGIMEN
     Route: 065
  4. METHOTREXATE [Suspect]
     Active Substance: METHOTREXATE
     Dosage: 3 G/M2, RECEIVED ON DAY 1; PART OF COPADM REGIMEN
     Route: 065
  5. METHOTREXATE [Suspect]
     Active Substance: METHOTREXATE
     Dosage: 3 MILLIGRAM/SQ. METER,RECEIVED ON DAY 1
     Route: 065
  6. PREDNISOLONE [Suspect]
     Active Substance: PREDNISOLONE
     Indication: Primary mediastinal large B-cell lymphoma
     Dosage: 60 MILLIGRAM/SQ. METER/DAY,RECEIVED ON DAY 1 TO 7
     Route: 065
  7. PREDNISOLONE [Suspect]
     Active Substance: PREDNISOLONE
     Dosage: 60 MILLIGRAM/SQ. METER,RECEIVED ON DAY 1 TO 5; PART OF COPADM REGIMEN
     Route: 065
  8. ETOPOSIDE [Suspect]
     Active Substance: ETOPOSIDE
     Indication: Primary mediastinal large B-cell lymphoma
     Dosage: UNK,RECEIVED TWO COURSES OF RCYVE GROUP
     Route: 065
  9. ETOPOSIDE [Suspect]
     Active Substance: ETOPOSIDE
     Dosage: UNK,RECEIVED TWO COURSES; PART OF R-ICE
     Route: 065
  10. CYCLOPHOSPHAMIDE [Suspect]
     Active Substance: CYCLOPHOSPHAMIDE
     Indication: Primary mediastinal large B-cell lymphoma
     Dosage: 300 MILLIGRAM/SQ. METER,RECEIVED ON DAY 1, LOW DOSE
     Route: 065
  11. CYCLOPHOSPHAMIDE [Suspect]
     Active Substance: CYCLOPHOSPHAMIDE
     Dosage: 250 MILLIGRAM/SQ. METER, EVERY 12 HRS,RECEIVED ON DAY 2 TO 4
     Route: 065
  12. VINCRISTINE [Suspect]
     Active Substance: VINCRISTINE
     Indication: Primary mediastinal large B-cell lymphoma
     Dosage: 2 MILLIGRAM/SQ. METER,RECEIVED ON DAY 1
     Route: 065
  13. VINCRISTINE [Suspect]
     Active Substance: VINCRISTINE
     Dosage: 2 MILLIGRAM/SQ. METER,RECEIVED ON DAY 1; PART OF COPADM REGIMEN
     Route: 065
  14. ADRIAMYCIN [Suspect]
     Active Substance: DOXORUBICIN HYDROCHLORIDE
     Indication: Primary mediastinal large B-cell lymphoma
     Dosage: 60 MILLIGRAM/SQ. METER,RECEIVED ON DAY 2; PART OF COPADM REGIMEN
     Route: 065
  15. CYTARABINE [Suspect]
     Active Substance: CYTARABINE
     Indication: Primary mediastinal large B-cell lymphoma
     Dosage: 100 MILLIGRAM/SQ. METER,RECEIVED ON DAY 2 TO 6
     Route: 065
  16. CYTARABINE [Suspect]
     Active Substance: CYTARABINE
     Dosage: UNK,RECEIVED ARAC,RECEIVED ON DAY 7
     Route: 037
  17. CYTARABINE [Suspect]
     Active Substance: CYTARABINE
     Dosage: UNK,RECEIVED 2 COURSES OF RCYVE GROUP COMPRISED OF HIGH-DOSE
     Route: 065
  18. CYTARABINE [Suspect]
     Active Substance: CYTARABINE
     Dosage: UNK, HIGH-DOSE,PART OF R-DHAP REGIMEN
     Route: 065
  19. RITUXIMAB [Suspect]
     Active Substance: RITUXIMAB
     Indication: Primary mediastinal large B-cell lymphoma
     Dosage: 375 MILLIGRAM/SQ. METER,RECEIVED ON DAY 1 OF EACH CHEMOTHERAPY COURSE; PART OF R-DHAP AND R-ICE REGI
     Route: 042
  20. CISPLATIN [Suspect]
     Active Substance: CISPLATIN
     Indication: Primary mediastinal large B-cell lymphoma
     Dosage: UNK,RECEIVED THREE COURSES; PART OF R-DHAP REGIMEN
     Route: 065
  21. IFOSFAMIDE [Suspect]
     Active Substance: IFOSFAMIDE
     Indication: Primary mediastinal large B-cell lymphoma
     Dosage: UNK,RECEIVED TWO COURSES; PART OF R-ICE
     Route: 065
  22. CARBOPLATIN [Suspect]
     Active Substance: CARBOPLATIN
     Indication: Primary mediastinal large B-cell lymphoma
     Dosage: UNK,RECEIVED TWO COURSES; PART OF R-ICE
     Route: 065

REACTIONS (3)
  - Drug ineffective [Fatal]
  - Systemic candida [Unknown]
  - Off label use [Unknown]
